FAERS Safety Report 14861520 (Version 1)
Quarter: 2018Q2

REPORT INFORMATION
  Report Type: Spontaneous
  Country: FR (occurrence: FR)
  Receive Date: 20180508
  Receipt Date: 20180508
  Transmission Date: 20180711
  Serious: Yes (Life-Threatening, Hospitalization)
  Sender: FDA-Public Use
  Company Number: FR-TEVA-2018-FR-890906

PATIENT
  Age: 27 Year
  Sex: Male

DRUGS (3)
  1. ALPRAZOLAM. [Suspect]
     Active Substance: ALPRAZOLAM
     Route: 065
  2. ZOPICLONE [Suspect]
     Active Substance: ZOPICLONE
     Route: 065
  3. METHADONE AP-HP [Suspect]
     Active Substance: METHADONE HYDROCHLORIDE
     Route: 065

REACTIONS (6)
  - Coma [Recovered/Resolved]
  - Hepatitis toxic [Recovered/Resolved]
  - Withdrawal syndrome [Recovered/Resolved]
  - Respiratory distress [Recovered/Resolved]
  - Acute kidney injury [Recovered/Resolved]
  - Myocarditis [Recovered/Resolved]
